FAERS Safety Report 6394002-6 (Version None)
Quarter: 2009Q4

REPORT INFORMATION
  Report Type: 
  Country: None (occurrence: None)
  Receive Date: 20091008
  Receipt Date: 20090923
  Transmission Date: 20100525
  Serious: Yes (Hospitalization, Other)
  Sender: FDA-Public Use
  Company Number: PHHY2009CA14244

PATIENT
  Sex: Male

DRUGS (8)
  1. DIOVAN [Suspect]
     Dosage: 80 MG, ONCE A DAY
     Route: 048
     Dates: start: 20081101
  2. DIOVAN [Suspect]
     Dosage: 160 MG, UNK
     Route: 048
  3. LOPRESSOR [Suspect]
     Indication: ARTERIAL DISORDER
     Dosage: 25 MG, BID
     Dates: start: 20090301
  4. LOPRESSOR [Suspect]
     Indication: HYPERTENSION
     Dosage: 12.5 MG, BID
     Dates: start: 20090501
  5. CIPRALEX [Concomitant]
     Indication: DEPRESSION
     Dosage: 20 MG, QD
  6. CRESTOR [Concomitant]
     Indication: BLOOD CHOLESTEROL
  7. METOPROLOL TARTRATE [Concomitant]
  8. NITROGLYCERIN [Concomitant]

REACTIONS (10)
  - AGITATION [None]
  - ASTHENIA [None]
  - BLOOD CHOLESTEROL INCREASED [None]
  - CRYING [None]
  - DEPRESSION [None]
  - FATIGUE [None]
  - FEELING ABNORMAL [None]
  - HEART RATE DECREASED [None]
  - HYPOTENSION [None]
  - MYOCARDIAL ISCHAEMIA [None]
